FAERS Safety Report 24232863 (Version 1)
Quarter: 2024Q3

REPORT INFORMATION
  Report Type: Spontaneous
  Country: US (occurrence: US)
  Receive Date: 20240821
  Receipt Date: 20240821
  Transmission Date: 20241016
  Serious: Yes (Disabling, Other)
  Sender: TEVA
  Company Number: US-TEVA-VS-3233132

PATIENT
  Sex: Male
  Weight: 113.4 kg

DRUGS (7)
  1. MODAFINIL [Suspect]
     Active Substance: MODAFINIL
     Indication: Fatigue
     Route: 065
  2. GABAPENTIN [Concomitant]
     Active Substance: GABAPENTIN
     Indication: Product used for unknown indication
  3. TOPAMAX [Concomitant]
     Active Substance: TOPIRAMATE
     Indication: Product used for unknown indication
  4. METHYLPHENIDATE [Concomitant]
     Active Substance: METHYLPHENIDATE
     Indication: Product used for unknown indication
  5. RITALIN [Suspect]
     Active Substance: METHYLPHENIDATE HYDROCHLORIDE
     Indication: Product used for unknown indication
     Route: 065
  6. DULOXETINE [Concomitant]
     Active Substance: DULOXETINE
     Indication: Product used for unknown indication
  7. BUPROPION [Concomitant]
     Active Substance: BUPROPION
     Indication: Product used for unknown indication

REACTIONS (8)
  - Brain injury [Not Recovered/Not Resolved]
  - Mental disorder [Unknown]
  - Delusion [Unknown]
  - Off label use [Unknown]
  - Psychotic disorder [Unknown]
  - Adverse drug reaction [Unknown]
  - Product use issue [Unknown]
  - Product use in unapproved indication [Unknown]
